FAERS Safety Report 12754829 (Version 3)
Quarter: 2017Q4

REPORT INFORMATION
  Report Type: Report from Study
  Country: US (occurrence: TR)
  Receive Date: 20160916
  Receipt Date: 20171227
  Transmission Date: 20180320
  Serious: Yes (Other)
  Sender: FDA-Public Use
  Company Number: TR-FRI-1000087508

PATIENT
  Age: 16 Year
  Sex: Female

DRUGS (15)
  1. TAMOL [Concomitant]
     Active Substance: ACETAMINOPHEN
     Indication: URINARY TRACT INFECTION
     Dosage: UNK
     Dates: start: 20160830, end: 20160831
  2. CEFTAZIDIME;AVIBACTAM UNK [Suspect]
     Active Substance: AVIBACTAM SODIUM\CEFTAZIDIME
     Indication: URINARY TRACT INFECTION
     Dosage: 2500 MG, UNK
     Route: 042
     Dates: start: 20160901, end: 20160902
  3. CEFTAZIDIME;AVIBACTAM UNK [Suspect]
     Active Substance: AVIBACTAM SODIUM\CEFTAZIDIME
     Dosage: 2500 MG, UNK
     Route: 042
     Dates: start: 20160903, end: 20160903
  4. SELECTRA [Concomitant]
     Indication: PRODUCT USED FOR UNKNOWN INDICATION
     Dosage: UNK
     Dates: start: 201403
  5. VITAMIN C [Concomitant]
     Active Substance: ASCORBIC ACID
     Indication: PRODUCT USED FOR UNKNOWN INDICATION
  6. CEFTAZIDIME;AVIBACTAM UNK [Suspect]
     Active Substance: AVIBACTAM SODIUM\CEFTAZIDIME
     Dosage: 2500 MG, UNK
     Route: 042
     Dates: start: 20160902, end: 20160902
  7. CEFTAZIDIME;AVIBACTAM UNK [Suspect]
     Active Substance: AVIBACTAM SODIUM\CEFTAZIDIME
     Dosage: 2500 MG, UNK
     Route: 042
     Dates: start: 20160902, end: 20160902
  8. ZINC. [Concomitant]
     Active Substance: ZINC
     Indication: PRODUCT USED FOR UNKNOWN INDICATION
  9. CEFTAZIDIME;AVIBACTAM UNK [Suspect]
     Active Substance: AVIBACTAM SODIUM\CEFTAZIDIME
     Dosage: 2500 MG, UNK
     Route: 042
     Dates: start: 20160903, end: 20160903
  10. DELIX [Concomitant]
     Active Substance: RAMIPRIL
     Indication: HYPERTENSION
     Dosage: UNK
     Dates: start: 20151022
  11. BUSCOPAN [Concomitant]
     Active Substance: BUTYLSCOPOLAMINE BROMIDE
     Indication: URINARY TRACT INFECTION
     Dosage: UNK
     Dates: start: 20160901, end: 20160901
  12. CEFTAZIDIME;AVIBACTAM UNK [Suspect]
     Active Substance: AVIBACTAM SODIUM\CEFTAZIDIME
     Dosage: 2500 MG, UNK
     Route: 042
     Dates: start: 20160902, end: 20160902
  13. NORVASC [Concomitant]
     Active Substance: AMLODIPINE BESYLATE
     Indication: HYPERTENSION
     Dosage: UNK
     Dates: start: 20160902
  14. PARACETAMOL [Concomitant]
     Active Substance: ACETAMINOPHEN
     Indication: URINARY TRACT INFECTION
     Dosage: UNK
     Dates: start: 20160830, end: 20160831
  15. CALCIUM [Concomitant]
     Active Substance: CALCIUM
     Indication: PRODUCT USED FOR UNKNOWN INDICATION

REACTIONS (1)
  - Nervous system disorder [Recovered/Resolved]

NARRATIVE: CASE EVENT DATE: 20160902
